FAERS Safety Report 5893564-2 (Version None)
Quarter: 2008Q3

REPORT INFORMATION
  Report Type: 
  Country: None (occurrence: None)
  Receive Date: 20080923
  Receipt Date: 20080911
  Transmission Date: 20090109
  Serious: Yes (Death, Hospitalization)
  Sender: FDA-Public Use
  Company Number: GB-ABBOTT-08P-167-0462870-00

PATIENT
  Sex: Female
  Weight: 47 kg

DRUGS (9)
  1. HUMIRA [Suspect]
     Indication: RHEUMATOID ARTHRITIS
     Route: 048
     Dates: start: 20060816
  2. IBUPROFEN [Concomitant]
     Indication: DRUG USE FOR UNKNOWN INDICATION
  3. ATORVASTATIN CALCIUM [Concomitant]
     Indication: DRUG USE FOR UNKNOWN INDICATION
  4. MELOXICAM [Concomitant]
     Indication: DRUG USE FOR UNKNOWN INDICATION
  5. RANITIDINE [Concomitant]
     Indication: DRUG USE FOR UNKNOWN INDICATION
  6. SOLIFENACINE SUCCINATE [Concomitant]
     Indication: DRUG USE FOR UNKNOWN INDICATION
  7. FERROUS SULFATE TAB [Concomitant]
     Indication: DRUG USE FOR UNKNOWN INDICATION
  8. SIMVASTATIN [Concomitant]
     Indication: DRUG USE FOR UNKNOWN INDICATION
  9. HYPROMELLOSE [Concomitant]
     Indication: DRUG USE FOR UNKNOWN INDICATION
     Dosage: EYE DROPS

REACTIONS (5)
  - ANAEMIA [None]
  - HYPERCHOLESTEROLAEMIA [None]
  - MYOCARDIAL INFARCTION [None]
  - SEPSIS [None]
  - URINARY TRACT INFECTION [None]
